FAERS Safety Report 6524704-X (Version None)
Quarter: 2009Q4

REPORT INFORMATION
  Report Type: 
  Country: None (occurrence: None)
  Receive Date: 20091214
  Receipt Date: 20090930
  Transmission Date: 20100525
  Serious: Yes (Hospitalization)
  Sender: FDA-Public Use
  Company Number: 659451

PATIENT
  Age: 56 Year
  Sex: Male

DRUGS (2)
  1. PEGASYS [Suspect]
     Indication: HEPATITIS C
     Dosage: 180 UG 1 PER WEEK
     Dates: start: 20090324, end: 20090924
  2. RIBASPHERE [Suspect]
     Indication: HEPATITIS C
     Dosage: 800 MG DAILY
     Dates: start: 20090324, end: 20090924

REACTIONS (4)
  - HAEMOGLOBIN DECREASED [None]
  - PAIN [None]
  - PHOTOSENSITIVITY REACTION [None]
  - POLYARTHRITIS [None]
